FAERS Safety Report 6122539-3 (Version None)
Quarter: 2009Q1

REPORT INFORMATION
  Report Type: 
  Country: None (occurrence: None)
  Receive Date: 20090318
  Receipt Date: 20090112
  Transmission Date: 20090719
  Serious: No
  Sender: FDA-Public Use
  Company Number: US-ASTRAZENECA-2009UW00960

PATIENT
  Age: 40 Year
  Sex: Male

DRUGS (1)
  1. SYMBICORT [Suspect]
     Indication: WHEEZING
     Dosage: 160/4.5 UG
     Route: 055
     Dates: start: 20090106

REACTIONS (1)
  - ORAL PAIN [None]
